FAERS Safety Report 20069925 (Version 1)
Quarter: 2021Q4

REPORT INFORMATION
  Report Type: Spontaneous
  Country: US (occurrence: US)
  Receive Date: 20211115
  Receipt Date: 20211115
  Transmission Date: 20220304
  Serious: No
  Sender: FDA-Public Use
  Company Number: US-TARO-2021TAR00843

PATIENT
  Sex: Female

DRUGS (2)
  1. TRETINOIN [Suspect]
     Active Substance: TRETINOIN
     Indication: Product used for unknown indication
     Dosage: UNK
     Route: 065
     Dates: start: 20210528
  2. TRETINOIN [Suspect]
     Active Substance: TRETINOIN
     Dosage: DISPENSED 15-JUL-2021
     Route: 065

REACTIONS (2)
  - Rash [Unknown]
  - Product colour issue [Unknown]
